FAERS Safety Report 8295701-1 (Version None)
Quarter: 2012Q2

REPORT INFORMATION
  Report Type: 
  Country: None (occurrence: None)
  Receive Date: 20120418
  Receipt Date: 20120411
  Transmission Date: 20120825
  Serious: Yes (Other)
  Sender: FDA-Public Use
  Company Number: US-AMGEN-USASP2012020122

PATIENT
  Age: 89 Year
  Sex: Male
  Weight: 78 kg

DRUGS (3)
  1. NPLATE [Suspect]
     Indication: IDIOPATHIC THROMBOCYTOPENIC PURPURA
     Dosage: 75 MUG, QWK
  2. NPLATE [Suspect]
     Dosage: 225 MUG, QWK
  3. NPLATE [Suspect]
     Dosage: 150 MUG, QWK

REACTIONS (5)
  - FALL [None]
  - BLADDER CANCER [None]
  - PROSTATE CANCER [None]
  - URINARY INCONTINENCE [None]
  - DIZZINESS [None]
